FAERS Safety Report 7780629-3 (Version None)
Quarter: 2011Q3

REPORT INFORMATION
  Report Type: 
  Country: None (occurrence: None)
  Receive Date: 20110927
  Receipt Date: 20101213
  Transmission Date: 20111222
  Serious: Yes (Other)
  Sender: FDA-Public Use
  Company Number: US-BRISTOL-MYERS SQUIBB COMPANY-15438450

PATIENT
  Age: 74 Year
  Sex: Male

DRUGS (5)
  1. DILTIAZEM HCL [Concomitant]
     Dosage: THERAPY DISCONTINUED
  2. AVAPRO [Suspect]
     Dosage: DOSE REDUCED TO 75 MG ONCE A DAY.
     Dates: start: 20051001
  3. PROTONIX [Concomitant]
  4. COUMADIN [Concomitant]
     Dosage: DISCONTINUED
  5. ASPIRIN [Concomitant]

REACTIONS (1)
  - ARRHYTHMIA [None]
